FAERS Safety Report 13944879 (Version 1)
Quarter: 2017Q3

REPORT INFORMATION
  Report Type: Spontaneous
  Country: US (occurrence: US)
  Receive Date: 20170907
  Receipt Date: 20170907
  Transmission Date: 20171128
  Serious: No
  Sender: FDA-Public Use
  Company Number: US-ROCHE-1266333

PATIENT
  Sex: Female

DRUGS (11)
  1. DEXAMETHASONE. [Concomitant]
     Active Substance: DEXAMETHASONE
  2. PRAVASTATIN. [Concomitant]
     Active Substance: PRAVASTATIN
  3. RITUXAN [Suspect]
     Active Substance: RITUXIMAB
     Indication: NON-HODGKIN^S LYMPHOMA
     Route: 065
     Dates: start: 20130410
  4. BENDAMUSTINE [Suspect]
     Active Substance: BENDAMUSTINE
     Indication: NON-HODGKIN^S LYMPHOMA
     Route: 065
     Dates: start: 20130508
  5. LISINOPRIL. [Concomitant]
     Active Substance: LISINOPRIL
  6. PROMETHAZINE [Concomitant]
     Active Substance: PROMETHAZINE\PROMETHAZINE HYDROCHLORIDE
     Indication: NAUSEA
  7. EVISTA [Concomitant]
     Active Substance: RALOXIFENE HYDROCHLORIDE
  8. LANTUS [Concomitant]
     Active Substance: INSULIN GLARGINE
  9. APIDRA [Concomitant]
     Active Substance: INSULIN GLULISINE
  10. SYNTHROID [Concomitant]
     Active Substance: LEVOTHYROXINE SODIUM
  11. CALTRATE [Concomitant]
     Active Substance: CALCIUM CARBONATE

REACTIONS (2)
  - Urticaria [Unknown]
  - Pruritus [Unknown]
